FAERS Safety Report 17449955 (Version 1)
Quarter: 2020Q1

REPORT INFORMATION
  Report Type: Spontaneous
  Country: US (occurrence: US)
  Receive Date: 20200210
  Receipt Date: 20200210
  Transmission Date: 20200409
  Serious: No
  Sender: FDA-Public Use
  Company Number: None

PATIENT
  Sex: Male

DRUGS (2)
  1. HARDCORE, OSTARIN, RAD-140, SARM SERIES [Suspect]
     Active Substance: DIETARY SUPPLEMENT\ENOBOSARM
     Indication: MUSCLE BUILDING THERAPY
     Dates: start: 20200210, end: 20200210
  2. HARDCORE, OSTARIN, RAD-140, SARM SERIES [Suspect]
     Active Substance: DIETARY SUPPLEMENT\ENOBOSARM
     Indication: WEIGHT LOSS DIET
     Dates: start: 20200210, end: 20200210

REACTIONS (1)
  - Gynaecomastia [None]

NARRATIVE: CASE EVENT DATE: 20200210
